FAERS Safety Report 5060080-X (Version None)
Quarter: 2006Q2

REPORT INFORMATION
  Report Type: 
  Country: None (occurrence: None)
  Receive Date: 20060630
  Receipt Date: 20060315
  Transmission Date: 20061013
  Serious: Yes (Other)
  Sender: FDA-Public Use
  Company Number: 440649

PATIENT
  Age: 15 Year
  Sex: Female

DRUGS (3)
  1. CELLCEPT [Suspect]
     Indication: LUPUS NEPHRITIS
     Dates: start: 20050615, end: 20050615
  2. GENGRAF [Suspect]
     Indication: LUPUS NEPHRITIS
     Dates: start: 20050615, end: 20050615
  3. CYTOXAN [Concomitant]

REACTIONS (1)
  - DIABETES MELLITUS [None]
